FAERS Safety Report 20107803 (Version 1)
Quarter: 2021Q4

REPORT INFORMATION
  Report Type: Spontaneous
  Country: US (occurrence: US)
  Receive Date: 20211124
  Receipt Date: 20211124
  Transmission Date: 20220303
  Serious: No
  Sender: FDA-Public Use
  Company Number: US-PERRIGO-21US003822

PATIENT
  Age: 31 Year
  Sex: Female
  Weight: 43.084 kg

DRUGS (13)
  1. POLYETHYLENE GLYCOL 3350 [Suspect]
     Active Substance: POLYETHYLENE GLYCOL 3350
     Indication: Constipation
     Dosage: 1 TEASPOON, SINGLE
     Route: 048
     Dates: start: 20210314, end: 20210314
  2. THORAZINE                          /00011901/ [Concomitant]
     Indication: Behaviour disorder
     Dosage: UNK
     Route: 065
  3. FLUOXETINE [Concomitant]
     Active Substance: FLUOXETINE HYDROCHLORIDE
     Indication: Behaviour disorder
     Dosage: UNK
     Route: 065
  4. VIMPAT [Concomitant]
     Active Substance: LACOSAMIDE
     Indication: Behaviour disorder
     Dosage: UNK
     Route: 065
  5. OLANZAPINE [Concomitant]
     Active Substance: OLANZAPINE
     Indication: Behaviour disorder
     Dosage: UNK
     Route: 065
  6. TRAMADOL [Concomitant]
     Active Substance: TRAMADOL
     Indication: Behaviour disorder
     Dosage: UNK
     Route: 065
  7. ACIPHEX [Concomitant]
     Active Substance: RABEPRAZOLE SODIUM
     Indication: Coeliac disease
     Dosage: UNK
     Route: 065
  8. ACIPHEX [Concomitant]
     Active Substance: RABEPRAZOLE SODIUM
     Indication: Pain
  9. REGLAN                             /00041901/ [Concomitant]
     Indication: Coeliac disease
     Dosage: UNK
     Route: 065
  10. REGLAN                             /00041901/ [Concomitant]
     Indication: Pain
  11. LAMOTRIGINE [Concomitant]
     Active Substance: LAMOTRIGINE
     Indication: Behaviour disorder
     Dosage: UNK
     Route: 065
     Dates: start: 20210208
  12. KEPPRA [Concomitant]
     Active Substance: LEVETIRACETAM
     Indication: Behaviour disorder
     Dosage: UNK
     Route: 065
  13. KEPPRA [Concomitant]
     Active Substance: LEVETIRACETAM
     Indication: Seizure

REACTIONS (2)
  - Abdominal pain upper [Not Recovered/Not Resolved]
  - Underdose [Recovered/Resolved]

NARRATIVE: CASE EVENT DATE: 20210314
